FAERS Safety Report 4476333-X (Version None)
Quarter: 2004Q4

REPORT INFORMATION
  Report Type: 
  Country: None (occurrence: None)
  Receive Date: 20041016
  Receipt Date: 20041007
  Transmission Date: 20050328
  Serious: Yes (Disabling)
  Sender: FDA-Public Use
  Company Number: BR-MERCK-0410BRA00291

PATIENT
  Age: 87 Year
  Sex: Female

DRUGS (4)
  1. CINNARIZINE [Concomitant]
     Indication: MEMORY IMPAIRMENT
     Route: 048
     Dates: start: 19980101, end: 20020101
  2. OMEPRAZOLE [Concomitant]
     Indication: GASTRITIS
     Route: 048
     Dates: start: 19980101
  3. PHENYTOIN [Concomitant]
     Indication: GASTRITIS
     Route: 048
     Dates: start: 20040401
  4. VIOXX [Suspect]
     Route: 048
     Dates: start: 20010709, end: 20040907

REACTIONS (2)
  - BRAIN NEOPLASM [None]
  - CERVICAL POLYP [None]
